FAERS Safety Report 9233417 (Version 1)
Quarter: 2013Q2

REPORT INFORMATION
  Report Type: Spontaneous
  Country: US (occurrence: US)
  Receive Date: 20130416
  Receipt Date: 20130416
  Transmission Date: 20140414
  Serious: No
  Sender: FDA-Public Use
  Company Number: US-BANPHARM-20131030

PATIENT
  Age: 55 Year
  Sex: Female
  Weight: 122.47 kg

DRUGS (6)
  1. ALEVE LIQUID GELS 220MG [Suspect]
     Indication: OSTEOARTHRITIS
     Dosage: 1 DF, QD,
     Route: 048
     Dates: start: 201204, end: 20120603
  2. BAYER ASPIRIN 81 MG [Concomitant]
  3. VOLTAREN GEL [Concomitant]
  4. NONSTEROIDAL ANTI-INFLAMMATORY DRUGS [Concomitant]
  5. PATCH FOR KNEE PAIN [Concomitant]
  6. ALEVE CAPLETS [Suspect]
     Route: 048

REACTIONS (6)
  - Rash macular [Unknown]
  - Skin discolouration [Unknown]
  - Pruritus [Recovered/Resolved]
  - Vision blurred [Recovered/Resolved]
  - Dizziness [Unknown]
  - Incorrect drug administration duration [Unknown]
